FAERS Safety Report 7586087-6 (Version None)
Quarter: 2011Q3

REPORT INFORMATION
  Report Type: 
  Country: None (occurrence: None)
  Receive Date: 20110701
  Receipt Date: 20110620
  Transmission Date: 20111222
  Serious: Yes (Other)
  Sender: FDA-Public Use
  Company Number: US-AMGEN-USASP2011031352

PATIENT
  Age: 80 Year
  Sex: Female

DRUGS (8)
  1. TYLENOL (CAPLET) [Concomitant]
  2. CITRACAL                           /00471001/ [Concomitant]
  3. PROLIA [Suspect]
     Indication: OSTEOPOROSIS POSTMENOPAUSAL
     Dosage: 1 UNK, Q6MO
     Dates: start: 20110413
  4. ATENOLOL [Concomitant]
     Dosage: UNK MG, UNK
  5. LIPITOR [Concomitant]
     Dosage: UNK MG, UNK
  6. DIOVAN [Concomitant]
     Dosage: UNK MG, UNK
  7. OMEPRAZOLE [Concomitant]
     Dosage: UNK MG, UNK
  8. VITAMINS                           /00067501/ [Concomitant]

REACTIONS (3)
  - HYPOAESTHESIA [None]
  - ORAL DISCOMFORT [None]
  - PAIN IN EXTREMITY [None]
